FAERS Safety Report 18497939 (Version 1)
Quarter: 2020Q4

REPORT INFORMATION
  Report Type: Spontaneous
  Country: GB (occurrence: GB)
  Receive Date: 20201112
  Receipt Date: 20201112
  Transmission Date: 20210114
  Serious: Yes (Other)
  Sender: FDA-Public Use
  Company Number: GB-MYLANLABS-2020M1093756

PATIENT
  Age: 36 Year
  Sex: Female
  Weight: 95 kg

DRUGS (4)
  1. ISOTRETINOIN. [Suspect]
     Active Substance: ISOTRETINOIN
     Dosage: 40 MILLIGRAM, QD
     Route: 048
     Dates: start: 2019
  2. ISOTRETINOIN. [Suspect]
     Active Substance: ISOTRETINOIN
     Indication: ACNE
     Dosage: 20 MILLIGRAM, QD
     Route: 048
     Dates: start: 20190606
  3. ISOTRETINOIN. [Suspect]
     Active Substance: ISOTRETINOIN
     Dosage: 60 MILLIGRAM, QD
     Route: 048
     Dates: end: 20191220
  4. SYMBICORT [Concomitant]
     Active Substance: BUDESONIDE\FORMOTEROL FUMARATE DIHYDRATE
     Dosage: 200/6
     Route: 055

REACTIONS (9)
  - Blood cholesterol increased [Recovered/Resolved]
  - Dry eye [Recovered/Resolved]
  - Loss of libido [Not Recovered/Not Resolved]
  - Palpitations [Unknown]
  - Blepharitis [Recovered/Resolved]
  - Oral herpes [Recovered/Resolved]
  - Chapped lips [Recovered/Resolved]
  - Conjunctivitis [Recovered/Resolved]
  - Chest pain [Recovered/Resolved with Sequelae]

NARRATIVE: CASE EVENT DATE: 2019
